FAERS Safety Report 9282733 (Version 1)
Quarter: 2013Q2

REPORT INFORMATION
  Report Type: Spontaneous
  Country: US (occurrence: None)
  Receive Date: 20130509
  Receipt Date: 20130509
  Transmission Date: 20140414
  Serious: Yes (Other)
  Sender: FDA-Public Use
  Company Number: None

PATIENT
  Age: 65 Year
  Sex: Female
  Weight: 72.58 kg

DRUGS (1)
  1. AZITHROMYCIN [Suspect]
     Indication: RESPIRATORY TRACT INFECTION
     Dosage: 2- DAY 1?1- DAY 2-4 DAILY
     Dates: start: 20120730, end: 20120803

REACTIONS (3)
  - Vision blurred [None]
  - Eyelid oedema [None]
  - Bladder discomfort [None]
